FAERS Safety Report 10911795 (Version 6)
Quarter: 2015Q3

REPORT INFORMATION
  Report Type: Spontaneous
  Country: US (occurrence: None)
  Receive Date: 20150309
  Receipt Date: 20150706
  Transmission Date: 20151125
  Serious: Yes (Life-Threatening, Hospitalization, Disabling, Other)
  Sender: FDA-Public Use
  Company Number: ADR-2015-00387

PATIENT
  Age: 54 Year
  Sex: Male

DRUGS (5)
  1. COMPOUNDED BACLOFEN INTRATHECAL [Suspect]
     Active Substance: BACLOFEN
     Indication: SPINAL PAIN
     Dosage: 116MCG/ML
  2. MORPHINE [Suspect]
     Active Substance: MORPHINE
     Dosage: 7 MG/ML?
  3. BUPIVACAINE [Suspect]
     Active Substance: BUPIVACAINE
     Indication: SPINAL PAIN
     Dosage: 14MG/ML
  4. PERCOCET [Suspect]
     Active Substance: ACETAMINOPHEN\OXYCODONE HYDROCHLORIDE
  5. CLONIDINE. [Suspect]
     Active Substance: CLONIDINE
     Dosage: 163MCG,ML??

REACTIONS (14)
  - Hypoaesthesia [None]
  - Arthralgia [None]
  - Chest pain [None]
  - Respiratory failure [None]
  - Accidental overdose [None]
  - Spinal cord oedema [None]
  - Paraesthesia [None]
  - Infusion site granuloma [None]
  - Granuloma [None]
  - Treatment failure [None]
  - Radicular pain [None]
  - Dysaesthesia [None]
  - Infection [None]
  - Muscular weakness [None]
